FAERS Safety Report 8612974-3 (Version None)
Quarter: 2012Q3

REPORT INFORMATION
  Report Type: 
  Country: None (occurrence: None)
  Receive Date: 20120822
  Receipt Date: 20120814
  Transmission Date: 20120928
  Serious: No
  Sender: FDA-Public Use
  Company Number: US-BAYER-2012-084051

PATIENT
  Age: 20 Year
  Sex: Male
  Weight: 75 kg

DRUGS (1)
  1. ASPIRIN [Suspect]
     Dosage: 1 DF, PRN
     Route: 048
     Dates: start: 20120101

REACTIONS (1)
  - VOMITING [None]
